FAERS Safety Report 11694778 (Version 1)
Quarter: 2015Q4

REPORT INFORMATION
  Report Type: Spontaneous
  Country: US (occurrence: US)
  Receive Date: 20151103
  Receipt Date: 20151103
  Transmission Date: 20160304
  Serious: No
  Sender: FDA-Public Use
  Company Number: US-BAUSCH-2015ST000151

PATIENT
  Age: 78 Year
  Sex: Male
  Weight: 89.34 kg

DRUGS (3)
  1. PREDNISONE. [Concomitant]
     Active Substance: PREDNISONE
     Indication: COLITIS ULCERATIVE
     Dosage: 20MG TAPER
     Route: 048
  2. UCERIS [Suspect]
     Active Substance: BUDESONIDE
     Indication: COLITIS ULCERATIVE
     Dosage: 9 MG, ONCE DAILY IN THE MORNING
     Route: 048
     Dates: start: 201412
  3. UCERIS [Suspect]
     Active Substance: BUDESONIDE
     Dosage: 9 MG, ONCE DAILY IN THE MORNING
     Dates: start: 20150617, end: 20150713

REACTIONS (3)
  - Drug ineffective [Not Recovered/Not Resolved]
  - Flatulence [Not Recovered/Not Resolved]
  - Cushingoid [Not Recovered/Not Resolved]

NARRATIVE: CASE EVENT DATE: 20150708
